FAERS Safety Report 25486962 (Version 1)
Quarter: 2025Q2

REPORT INFORMATION
  Report Type: Spontaneous
  Country: CA (occurrence: CA)
  Receive Date: 20250627
  Receipt Date: 20250627
  Transmission Date: 20250717
  Serious: Yes (Other)
  Sender: TEVA
  Company Number: CA-TEVA-VS-3343990

PATIENT
  Age: 35 Year
  Sex: Female

DRUGS (1)
  1. TAMOXIFEN [Suspect]
     Active Substance: TAMOXIFEN
     Indication: Hormone level abnormal
     Route: 048

REACTIONS (6)
  - Gait inability [Not Recovered/Not Resolved]
  - Off label use [Unknown]
  - Bone disorder [Not Recovered/Not Resolved]
  - Joint instability [Not Recovered/Not Resolved]
  - Product availability issue [Unknown]
  - Premature ageing [Not Recovered/Not Resolved]
